FAERS Safety Report 5878174-5 (Version None)
Quarter: 2008Q3

REPORT INFORMATION
  Report Type: 
  Country: None (occurrence: None)
  Receive Date: 20080910
  Receipt Date: 20080910
  Transmission Date: 20090109
  Serious: Yes (Hospitalization)
  Sender: FDA-Public Use
  Company Number: None

PATIENT
  Age: 14 Year
  Sex: Male
  Weight: 90.8 kg

DRUGS (7)
  1. BUPROPION XL 300MG - 450MG [Suspect]
     Indication: BIPOLAR DISORDER
     Dosage: 300MG P.O. QD + 450MG P.O. QD
     Route: 048
     Dates: start: 20080301
  2. BUPROPION XL 300MG - 450MG [Suspect]
     Indication: DEPRESSION
     Dosage: 300MG P.O. QD + 450MG P.O. QD
     Route: 048
     Dates: start: 20080301
  3. BUPROPION XL 300MG - 450MG [Suspect]
     Indication: BIPOLAR DISORDER
     Dosage: 300MG P.O. QD + 450MG P.O. QD
     Route: 048
     Dates: start: 20080801
  4. BUPROPION XL 300MG - 450MG [Suspect]
     Indication: DEPRESSION
     Dosage: 300MG P.O. QD + 450MG P.O. QD
     Route: 048
     Dates: start: 20080801
  5. LEVOTHROID [Concomitant]
  6. LAMOTRIGINE [Concomitant]
  7. ALPRAZOLAM [Concomitant]

REACTIONS (3)
  - DEPRESSION [None]
  - DRUG INEFFECTIVE [None]
  - THERAPEUTIC RESPONSE UNEXPECTED WITH DRUG SUBSTITUTION [None]
